FAERS Safety Report 8399709-7 (Version None)
Quarter: 2012Q2

REPORT INFORMATION
  Report Type: 
  Country: None (occurrence: None)
  Receive Date: 20120525
  Receipt Date: 20120515
  Transmission Date: 20120825
  Serious: Yes (Hospitalization)
  Sender: FDA-Public Use
  Company Number: 2012AL000049

PATIENT
  Age: 62 Year
  Sex: Male
  Weight: 132.9039 kg

DRUGS (17)
  1. FOLIC ACID [Concomitant]
  2. BACITRACIN [Concomitant]
  3. GABAPENTIN [Concomitant]
  4. MELOXCAM [Concomitant]
  5. METHOCARBAMOL [Concomitant]
  6. PAROXETINE HCL [Concomitant]
  7. DIAZEPAM [Concomitant]
  8. POTASSIUM CHLORIDE [Concomitant]
  9. INDAPAMIDE [Concomitant]
  10. SILDENAFIL CITRATE [Concomitant]
  11. TERAZOSIN HCL [Concomitant]
  12. PRALATREXATE (PRALATREXATE) [Suspect]
     Indication: MANTLE CELL LYMPHOMA
     Dosage: 60 MG;QW;IV
     Route: 042
     Dates: start: 20120307, end: 20120502
  13. CYANOCOBALAMIN [Concomitant]
  14. ARTIFICAL TEARS [Concomitant]
  15. HYDROCODONE BITARTRATE + ACETAMINOPHEN [Concomitant]
  16. OMEPRAZOLE [Concomitant]
  17. SODIUM FLUORIDE [Concomitant]

REACTIONS (3)
  - PLATELET COUNT DECREASED [None]
  - RED BLOOD CELL COUNT DECREASED [None]
  - DEVICE RELATED INFECTION [None]
